FAERS Safety Report 5576992-4 (Version None)
Quarter: 2007Q4

REPORT INFORMATION
  Report Type: 
  Country: None (occurrence: None)
  Receive Date: 20071228
  Receipt Date: 20071220
  Transmission Date: 20080405
  Serious: Yes (Hospitalization, Other)
  Sender: FDA-Public Use
  Company Number: FR-RANBAXY-2007US-12057

PATIENT

DRUGS (6)
  1. ISOPTIN SR [Interacting]
     Indication: ARRHYTHMIA
     Dosage: 160 MG, UNK
     Route: 048
     Dates: start: 20070927, end: 20070927
  2. ISOPTIN SR [Interacting]
     Dosage: 120 MG, UNK
     Route: 048
     Dates: start: 20070928, end: 20070928
  3. PEMETREXED [Suspect]
     Indication: LUNG NEOPLASM MALIGNANT
     Dosage: 1 G, UNK
     Route: 048
     Dates: start: 20070927, end: 20070927
  4. PEMETREXED [Suspect]
     Dosage: 975 MG, UNK
     Route: 048
     Dates: start: 20071018
  5. BETAXOLOL [Concomitant]
     Indication: HYPERTENSION
     Dosage: UNK
     Route: 065
  6. FLECAINIDE ACETATE [Concomitant]
     Indication: ARRHYTHMIA
     Dosage: 150 MG, QD
     Route: 048
     Dates: start: 20070928

REACTIONS (1)
  - CYTOLYTIC HEPATITIS [None]
